FAERS Safety Report 6886389-2 (Version None)
Quarter: 2010Q3

REPORT INFORMATION
  Report Type: 
  Country: None (occurrence: None)
  Receive Date: 20100729
  Receipt Date: 20090511
  Transmission Date: 20110219
  Serious: No
  Sender: FDA-Public Use
  Company Number: US-PFIZER INC-2009211780

PATIENT
  Sex: Female
  Weight: 63.5 kg

DRUGS (8)
  1. CELEBREX [Suspect]
     Indication: SWELLING
     Dosage: 200 MG, EVERY DAY
     Dates: start: 20090501, end: 20090501
  2. CELEBREX [Suspect]
     Indication: PAIN
  3. MEDROL [Suspect]
     Indication: SWELLING
     Dosage: UNK
     Dates: start: 20090101, end: 20090501
  4. MEDROL [Suspect]
     Indication: PAIN
  5. CYMBALTA [Concomitant]
     Indication: DEPRESSION
  6. PEPCID [Concomitant]
  7. CLONAZEPAM [Concomitant]
     Indication: MUSCLE SPASMS
     Dosage: 1 MG, UNK
  8. OMEPRAZOLE [Concomitant]
     Dosage: 40 MG, 2X/DAY

REACTIONS (2)
  - ABDOMINAL PAIN UPPER [None]
  - FEELING ABNORMAL [None]
